FAERS Safety Report 13614213 (Version 1)
Quarter: 2017Q2

REPORT INFORMATION
  Report Type: Spontaneous
  Country: US (occurrence: US)
  Receive Date: 20170605
  Receipt Date: 20170605
  Transmission Date: 20170830
  Serious: Yes (Life-Threatening, Disabling, Other)
  Sender: FDA-Public Use
  Company Number: None

PATIENT
  Age: 42 Year
  Sex: Female
  Weight: 69.75 kg

DRUGS (7)
  1. DULOXETINE HYDROCHLORIDE. [Suspect]
     Active Substance: DULOXETINE HYDROCHLORIDE
     Indication: MIGRAINE
  2. DIOMOX [Concomitant]
  3. VITAMIN B COMPLEX [Concomitant]
     Active Substance: CYANOCOBALAMIN\DEXPANTHENOL\NIACINAMIDE\PYRIDOXINE HYDROCHLORIDE\RIBOFLAVIN 5^-PHOSPHATE SODIUM\THIAMINE HYDROCHLORIDE\VITAMIN B COMPLEX
  4. VITAMIN D3 [Concomitant]
     Active Substance: CHOLECALCIFEROL
  5. LAMICTAL [Concomitant]
     Active Substance: LAMOTRIGINE
  6. FISH OIL [Concomitant]
     Active Substance: FISH OIL
  7. CYMBALTA [Concomitant]
     Active Substance: DULOXETINE HYDROCHLORIDE

REACTIONS (11)
  - Pain in jaw [None]
  - Fatigue [None]
  - Drug withdrawal syndrome [None]
  - Paraesthesia [None]
  - Tinnitus [None]
  - Drug ineffective [None]
  - Impaired work ability [None]
  - Dizziness [None]
  - Malaise [None]
  - Joint stiffness [None]
  - Suicidal ideation [None]

NARRATIVE: CASE EVENT DATE: 20170605
